FAERS Safety Report 9972350 (Version 1)
Quarter: 2014Q1

REPORT INFORMATION
  Report Type: Spontaneous
  Country: US (occurrence: None)
  Receive Date: 20140305
  Receipt Date: 20140305
  Transmission Date: 20141002
  Serious: Yes (Hospitalization)
  Sender: FDA-Public Use
  Company Number: None

PATIENT
  Age: 81 Year
  Sex: Male

DRUGS (1)
  1. ZYTIGA 250MG JANSSEN BIOTECH [Suspect]
     Route: 048
     Dates: start: 20130315, end: 20140224

REACTIONS (1)
  - Abdominal pain [None]
